FAERS Safety Report 18276946 (Version 1)
Quarter: 2020Q3

REPORT INFORMATION
  Report Type: Spontaneous
  Country: US (occurrence: US)
  Receive Date: 20200917
  Receipt Date: 20200917
  Transmission Date: 20201103
  Serious: No
  Sender: FDA-Public Use
  Company Number: US-BAYER-2020-187548

PATIENT
  Age: 48 Year
  Sex: Male

DRUGS (6)
  1. ALEVE [Suspect]
     Active Substance: NAPROXEN SODIUM
     Indication: NICOTINE DEPENDENCE
  2. ALEVE [Suspect]
     Active Substance: NAPROXEN SODIUM
     Indication: SLEEP DISORDER
  3. ALEVE [Suspect]
     Active Substance: NAPROXEN SODIUM
     Indication: WITHDRAWAL SYNDROME
  4. ALEVE [Suspect]
     Active Substance: NAPROXEN SODIUM
     Indication: ARTHRALGIA
     Dosage: 1 DF, EVERY 5 OR 6 HOURS
     Route: 048
     Dates: start: 2000
  5. ALEVE [Suspect]
     Active Substance: NAPROXEN SODIUM
     Indication: TREMOR
  6. ALEVE [Suspect]
     Active Substance: NAPROXEN SODIUM
     Indication: CHILLS

REACTIONS (1)
  - Drug effective for unapproved indication [None]
